FAERS Safety Report 13578332 (Version 2)
Quarter: 2017Q3

REPORT INFORMATION
  Report Type: Spontaneous
  Country: RU (occurrence: RU)
  Receive Date: 20170524
  Receipt Date: 20170719
  Transmission Date: 20171127
  Serious: Yes (Death)
  Sender: FDA-Public Use
  Company Number: RU-ABBVIE-17P-251-1985054-00

PATIENT

DRUGS (1)
  1. SURVANTA [Suspect]
     Active Substance: BERACTANT
     Indication: NEONATAL RESPIRATORY DISTRESS SYNDROME
     Route: 065
     Dates: start: 2017, end: 2017

REACTIONS (4)
  - Pulmonary oedema [Fatal]
  - Pneumothorax [Fatal]
  - Respiratory failure [Fatal]
  - Pulmonary haemorrhage [Fatal]
